FAERS Safety Report 8974753 (Version 2)
Quarter: 2012Q4

REPORT INFORMATION
  Report Type: 
  Country: PH (occurrence: PH)
  Receive Date: 20121219
  Receipt Date: 20121226
  Transmission Date: 20130627
  Serious: Yes (Death, Hospitalization)
  Sender: FDA-Public Use
  Company Number: PH-PFIZER INC-2012309067

PATIENT
  Age: 72 Year
  Sex: Female
  Weight: 60 kg

DRUGS (2)
  1. AROMASIN [Suspect]
     Indication: BREAST CANCER
     Dosage: 25 mg, 1x/day
     Route: 048
     Dates: start: 2008, end: 20121128
  2. BONDRONAT [Concomitant]
     Dosage: UNK
     Route: 048
     Dates: start: 2008

REACTIONS (4)
  - Disease progression [Fatal]
  - Breast cancer [Fatal]
  - Organ failure [Fatal]
  - Vomiting [Unknown]
